FAERS Safety Report 10161271 (Version 2)
Quarter: 2014Q2

REPORT INFORMATION
  Report Type: Spontaneous
  Country: US (occurrence: US)
  Receive Date: 20140508
  Receipt Date: 20140530
  Transmission Date: 20141212
  Serious: Yes (Hospitalization, Other)
  Sender: FDA-Public Use
  Company Number: US-PFIZER INC-2014124270

PATIENT
  Age: 57 Year
  Sex: Female

DRUGS (7)
  1. XELJANZ [Suspect]
     Indication: RHEUMATOID ARTHRITIS
     Dosage: 5 MG, 2X/DAY
     Route: 048
     Dates: end: 20140405
  2. ZOLOFT [Concomitant]
     Dosage: UNK
  3. PROVENTIL [Concomitant]
     Dosage: UNK
  4. KLONOPIN [Concomitant]
     Dosage: 0.5 HS
  5. COZAAR [Concomitant]
     Dosage: 25/D
  6. MIACALCIN [Concomitant]
     Dosage: UNK
  7. TIZANIDINE [Concomitant]
     Dosage: 4 MG, HS

REACTIONS (3)
  - Colitis ischaemic [Unknown]
  - Abdominal pain [Recovered/Resolved]
  - Diarrhoea [Recovered/Resolved]
